FAERS Safety Report 18243367 (Version 1)
Quarter: 2020Q3

REPORT INFORMATION
  Report Type: Spontaneous
  Country: US (occurrence: US)
  Receive Date: 20200908
  Receipt Date: 20200908
  Transmission Date: 20201103
  Serious: Yes (Other)
  Sender: FDA-Public Use
  Company Number: US-BAUSCH-BL-2020-025198

PATIENT
  Age: 38 Year
  Sex: Female

DRUGS (1)
  1. LUMIFY [Suspect]
     Active Substance: BRIMONIDINE TARTRATE
     Indication: OCULAR HYPERAEMIA
     Dosage: 1 DROP IN EACH EYE (STARTED ABOUT 2 TO 3 MONTHS AGO FROM INITIAL REPORT). STOPPED ABOUT 4 DAYS PRIOR
     Route: 047
     Dates: start: 2020, end: 202008

REACTIONS (3)
  - Ocular hyperaemia [Not Recovered/Not Resolved]
  - Night blindness [Unknown]
  - Condition aggravated [Not Recovered/Not Resolved]

NARRATIVE: CASE EVENT DATE: 202008
